FAERS Safety Report 10003923 (Version 6)
Quarter: 2015Q3

REPORT INFORMATION
  Report Type: Spontaneous
  Country: US (occurrence: US)
  Receive Date: 20140312
  Receipt Date: 20150724
  Transmission Date: 20151125
  Serious: Yes (Other)
  Sender: FDA-Public Use
  Company Number: US-INCYTE CORPORATION-2012IN000160

PATIENT
  Sex: Female
  Weight: 62.13 kg

DRUGS (17)
  1. NASONEX [Concomitant]
     Active Substance: MOMETASONE FUROATE
     Dosage: PRN
  2. OMEGA                              /01454401/ [Concomitant]
  3. JAKAFI [Suspect]
     Active Substance: RUXOLITINIB
     Dosage: 7.5 MG, BID
     Route: 048
     Dates: start: 20120106
  4. CELEBREX [Concomitant]
     Active Substance: CELECOXIB
     Dosage: PRN
  5. SLOW MAG                           /07370001/ [Concomitant]
  6. PANTOPRAZOLE [Concomitant]
     Active Substance: PANTOPRAZOLE SODIUM
  7. LEVOTHYROXINE. [Concomitant]
     Active Substance: LEVOTHYROXINE
  8. CIMETIDINE [Concomitant]
     Active Substance: CIMETIDINE
  9. VITAMIN D3 [Concomitant]
     Active Substance: CHOLECALCIFEROL
  10. CETIRIZINE                         /00884302/ [Concomitant]
     Active Substance: CETIRIZINE HYDROCHLORIDE
  11. ROPINIROLE. [Concomitant]
     Active Substance: ROPINIROLE
  12. ASPIRIN. [Concomitant]
     Active Substance: ASPIRIN
  13. PLAVIX [Concomitant]
     Active Substance: CLOPIDOGREL BISULFATE
  14. SIMVASTATIN. [Concomitant]
     Active Substance: SIMVASTATIN
  15. JAKAFI [Suspect]
     Active Substance: RUXOLITINIB
     Indication: MYELOFIBROSIS
     Dosage: 20 MG, BID
     Route: 048
     Dates: start: 2011
  16. ALLOPURINOL. [Concomitant]
     Active Substance: ALLOPURINOL
  17. RESTASIS [Concomitant]
     Active Substance: CYCLOSPORINE
     Indication: DRY EYE

REACTIONS (12)
  - Dizziness [Unknown]
  - Wrong technique in product usage process [Unknown]
  - Blindness [Unknown]
  - Epistaxis [Unknown]
  - Increased tendency to bruise [Unknown]
  - Skin cancer [Unknown]
  - Dry eye [Unknown]
  - Increased appetite [Unknown]
  - Weight increased [Unknown]
  - Pruritus [Unknown]
  - Diarrhoea [Unknown]
  - Constipation [Unknown]

NARRATIVE: CASE EVENT DATE: 2012
